FAERS Safety Report 21479810 (Version 1)
Quarter: 2022Q4

REPORT INFORMATION
  Report Type: Spontaneous
  Country: US (occurrence: None)
  Receive Date: 20221018
  Receipt Date: 20221018
  Transmission Date: 20230113
  Serious: Yes (Hospitalization)
  Sender: FDA-Public Use
  Company Number: None

PATIENT
  Age: 63 Year
  Sex: Female

DRUGS (17)
  1. MYCOPHENOLIC ACID [Suspect]
     Active Substance: MYCOPHENOLIC ACID
     Indication: Lung transplant
     Dosage: 500MG ORAL?TAKE 2 TABLETS (1,000 MG) BY MOUTH TWO TIMES DAILY.
     Dates: start: 20220622
  2. ARIPIPRAZOLE [Concomitant]
     Active Substance: ARIPIPRAZOLE
  3. BENZONATATE CAP [Concomitant]
  4. EFFEXOR XR [Concomitant]
     Active Substance: VENLAFAXINE HYDROCHLORIDE
  5. FLUOXETINE CAP [Concomitant]
  6. OFEV CAP [Concomitant]
  7. OFEV [Concomitant]
  8. PREDNISONE [Concomitant]
     Active Substance: PREDNISONE
  9. SIMVASTATIN [Concomitant]
     Active Substance: SIMVASTATIN
  10. SINGULAIR [Concomitant]
     Active Substance: MONTELUKAST SODIUM
  11. TACROLIMUS [Concomitant]
     Active Substance: TACROLIMUS
  12. TELMISA/HCTZ [Concomitant]
  13. TESSALON [Concomitant]
     Active Substance: BENZONATATE
  14. TRELEGY AER [Concomitant]
  15. ELLIPTA [Concomitant]
  16. VENLAFAXINE CAP [Concomitant]
  17. ZOFRAN [Concomitant]
     Active Substance: ONDANSETRON HYDROCHLORIDE

REACTIONS (1)
  - Hospitalisation [None]

NARRATIVE: CASE EVENT DATE: 20221013
